FAERS Safety Report 8958486 (Version 1)
Quarter: 2012Q4

REPORT INFORMATION
  Report Type: Spontaneous
  Country: IT (occurrence: None)
  Receive Date: 20121203
  Receipt Date: 20121203
  Transmission Date: 20130627
  Serious: Yes (Hospitalization)
  Sender: FDA-Public Use
  Company Number: 2012-8007

PATIENT
  Sex: Female

DRUGS (2)
  1. DYSPORT [Suspect]
     Indication: DETRUSOR HYPERREFLEXIA
     Dosage: 750 units (750 units, cycle(s), Intramuscular Between Jan-2000 and Dec-2011-Between Jan-2000 and Dec-2011
     Route: 030
  2. DYSPORT [Suspect]
     Indication: DRUG USE FOR UNAPPROVED INDICATION
     Dosage: 750 units (750 units, cycle(s), Intramuscular Between Jan-2000 and Dec-2011-Between Jan-2000 and Dec-2011
     Route: 030

REACTIONS (3)
  - Asthenia [None]
  - Dysphagia [None]
  - Dysphonia [None]
